FAERS Safety Report 12724327 (Version 1)
Quarter: 2016Q3

REPORT INFORMATION
  Report Type: Spontaneous
  Country: US (occurrence: US)
  Receive Date: 20160908
  Receipt Date: 20160908
  Transmission Date: 20161109
  Serious: No
  Sender: FDA-Public Use
  Company Number: US-FERRINGPH-2015FE03462

PATIENT
  Age: 55 Year
  Sex: Female

DRUGS (1)
  1. PREPOPIK [Suspect]
     Active Substance: ANHYDROUS CITRIC ACID\MAGNESIUM OXIDE\SODIUM PICOSULFATE
     Indication: BOWEL PREPARATION
     Dosage: UNK
     Route: 061
     Dates: start: 20151004, end: 20151004

REACTIONS (2)
  - Application site hypersensitivity [Recovered/Resolved]
  - Drug administered at inappropriate site [None]

NARRATIVE: CASE EVENT DATE: 20151004
